FAERS Safety Report 21048535 (Version 1)
Quarter: 2022Q3

REPORT INFORMATION
  Report Type: Spontaneous
  Country: US (occurrence: None)
  Receive Date: 20220705
  Receipt Date: 20220705
  Transmission Date: 20221027
  Serious: Yes (Other)
  Sender: FDA-Public Use
  Company Number: None

PATIENT
  Age: 46 Year
  Sex: Female
  Weight: 81 kg

DRUGS (1)
  1. SUBOXONE [Suspect]
     Active Substance: BUPRENORPHINE HYDROCHLORIDE\NALOXONE HYDROCHLORIDE
     Indication: Drug abuse
     Dates: start: 20160301, end: 20181201

REACTIONS (4)
  - Dental caries [None]
  - Product dosage form issue [None]
  - Economic problem [None]
  - Impaired quality of life [None]

NARRATIVE: CASE EVENT DATE: 20170113
